FAERS Safety Report 12838889 (Version 1)
Quarter: 2016Q4

REPORT INFORMATION
  Report Type: Spontaneous
  Country: US (occurrence: US)
  Receive Date: 20161012
  Receipt Date: 20161012
  Transmission Date: 20170207
  Serious: No
  Sender: FDA-Public Use
  Company Number: US-PFIZER INC-2016467944

PATIENT
  Age: 19 Year
  Sex: Female
  Weight: 61 kg

DRUGS (3)
  1. VALACYCLOVIR [Concomitant]
     Active Substance: VALACYCLOVIR HYDROCHLORIDE
     Dosage: 1000 MG, 2X/DAY (500MG, 2 TABLETS, FOR 7 DAYS)
     Route: 048
  2. DEPO-PROVERA [Suspect]
     Active Substance: MEDROXYPROGESTERONE ACETATE
     Indication: CONTRACEPTION
     Dosage: UNK
     Dates: start: 20160928
  3. HYDROXYZINE [Concomitant]
     Active Substance: HYDROXYZINE\HYDROXYZINE HYDROCHLORIDE
     Indication: PRURITUS
     Dosage: 25 MG, AS NEEDED (EVERY 6 HOURS)
     Route: 048

REACTIONS (12)
  - Blister [Unknown]
  - Gingival swelling [Unknown]
  - Condition aggravated [Unknown]
  - Mouth swelling [Unknown]
  - Swollen tongue [Unknown]
  - Urticaria [Unknown]
  - Rash [Unknown]
  - Lip swelling [Unknown]
  - Eyelid oedema [Unknown]
  - Genital swelling [Unknown]
  - Hypersensitivity [Not Recovered/Not Resolved]
  - Nasopharyngitis [Unknown]

NARRATIVE: CASE EVENT DATE: 20161001
